FAERS Safety Report 9329996 (Version 1)
Quarter: 2013Q2

REPORT INFORMATION
  Report Type: Spontaneous
  Country: US (occurrence: US)
  Receive Date: 20130604
  Receipt Date: 20130604
  Transmission Date: 20140414
  Serious: No
  Sender: FDA-Public Use
  Company Number: US-SANOFI-AVENTIS-2012SA055937

PATIENT
  Age: 69 Year
  Sex: Male
  Weight: 58 kg

DRUGS (2)
  1. SOLOSTAR [Suspect]
     Indication: TYPE 2 DIABETES MELLITUS
     Dosage: STARTED ON LANTUS VIAL
     Dates: start: 201207, end: 20120715
  2. LANTUS SOLOSTAR [Suspect]
     Indication: TYPE 2 DIABETES MELLITUS
     Dosage: STARTED ON LANTUS VIAL DOSE:5 UNIT(S)
     Route: 058
     Dates: start: 201207, end: 20120715

REACTIONS (5)
  - Unevaluable event [Unknown]
  - Rash pruritic [Not Recovered/Not Resolved]
  - Erythema [Recovering/Resolving]
  - Swelling [Recovering/Resolving]
  - Mobility decreased [Unknown]
